FAERS Safety Report 17808055 (Version 2)
Quarter: 2020Q2

REPORT INFORMATION
  Report Type: Spontaneous
  Country: IT (occurrence: IT)
  Receive Date: 20200520
  Receipt Date: 20200521
  Transmission Date: 20200714
  Serious: Yes (Hospitalization)
  Sender: FDA-Public Use
  Company Number: IT-PFIZER INC-2020198610

PATIENT
  Age: 37 Year
  Sex: Female

DRUGS (3)
  1. CARBOLITHIUM [Suspect]
     Active Substance: LITHIUM CARBONATE
     Dosage: 300 MG (30 TABLETS)
     Route: 048
     Dates: start: 20200424
  2. QUETIAPINE FUMARATE. [Suspect]
     Active Substance: QUETIAPINE FUMARATE
     Dosage: 25 MG (30 TABLETS)
     Route: 048
     Dates: start: 20200424
  3. XANAX [Suspect]
     Active Substance: ALPRAZOLAM
     Dosage: 0.5 MG (40 TABLETS)
     Route: 048
     Dates: start: 20200424

REACTIONS (4)
  - Somnolence [Recovered/Resolved]
  - Drug abuse [Recovered/Resolved]
  - Unresponsive to stimuli [Recovered/Resolved]
  - Vomiting [Recovered/Resolved]

NARRATIVE: CASE EVENT DATE: 20200424
